FAERS Safety Report 7093916-1 (Version None)
Quarter: 2010Q4

REPORT INFORMATION
  Report Type: 
  Country: None (occurrence: None)
  Receive Date: 20101110
  Receipt Date: 20101102
  Transmission Date: 20110411
  Serious: Yes (Hospitalization)
  Sender: FDA-Public Use
  Company Number: HU-AMGEN-HUNNI2010002950

PATIENT

DRUGS (11)
  1. DARBEPOETIN ALFA [Suspect]
     Indication: RENAL FAILURE CHRONIC
     Dosage: UNK
     Dates: start: 20090628
  2. FUROSEMID                          /00032601/ [Concomitant]
     Dosage: 2.25 MG, UNK
  3. SODIUM CHLORIDE [Concomitant]
     Dosage: 2 ML, UNK
  4. VIGANTOL                           /00107901/ [Concomitant]
  5. HYPOTHIAZID [Concomitant]
  6. NORMODIPIN                         /00972401/ [Concomitant]
  7. MALTOFER                           /00383901/ [Concomitant]
     Dosage: 5 ML, UNK
  8. FOLIC ACID [Concomitant]
  9. ZINNAT                             /00454601/ [Concomitant]
     Dosage: 2 ML, UNK
  10. OSPAMOX                            /00249601/ [Concomitant]
     Dosage: 2 ML, UNK
  11. LEVOTHYROXINE SODIUM [Concomitant]
     Dosage: 25 A?G, UNK

REACTIONS (1)
  - VIRAL INFECTION [None]
